FAERS Safety Report 24133920 (Version 3)
Quarter: 2024Q3

REPORT INFORMATION
  Report Type: Spontaneous
  Country: US (occurrence: US)
  Receive Date: 20240724
  Receipt Date: 20240730
  Transmission Date: 20241017
  Serious: Yes (Hospitalization)
  Sender: ANI
  Company Number: US-ANIPHARMA-2024-US-039799

PATIENT
  Age: 82 Year
  Sex: Female

DRUGS (1)
  1. ARIMIDEX [Suspect]
     Active Substance: ANASTROZOLE
     Indication: Product used for unknown indication
     Route: 048

REACTIONS (4)
  - Asthma [Unknown]
  - Bronchospasm [Unknown]
  - Obstructive airways disorder [Unknown]
  - Respiratory tract oedema [Unknown]

NARRATIVE: CASE EVENT DATE: 20040101
